FAERS Safety Report 7498247-3 (Version None)
Quarter: 2011Q2

REPORT INFORMATION
  Report Type: 
  Country: None (occurrence: None)
  Receive Date: 20110524
  Receipt Date: 20110517
  Transmission Date: 20111010
  Serious: No
  Sender: FDA-Public Use
  Company Number: US-BIOGENIDEC-2011BI018713

PATIENT
  Sex: Male

DRUGS (2)
  1. TYSABRI [Suspect]
     Indication: MULTIPLE SCLEROSIS
     Route: 042
     Dates: start: 20101118
  2. TYSABRI [Suspect]
     Route: 042
     Dates: start: 20071025, end: 20100816

REACTIONS (2)
  - BALANCE DISORDER [None]
  - ASTHENIA [None]
